FAERS Safety Report 15775350 (Version 1)
Quarter: 2018Q4

REPORT INFORMATION
  Report Type: Spontaneous
  Country: BE (occurrence: BE)
  Receive Date: 20181231
  Receipt Date: 20181231
  Transmission Date: 20190205
  Serious: Yes (Death, Other)
  Sender: FDA-Public Use
  Company Number: BE-ASTELLAS-2018US055280

PATIENT
  Age: 68 Year
  Sex: Male

DRUGS (2)
  1. AMPHOTERICIN B, LIPOSOME [Suspect]
     Active Substance: AMPHOTERICIN B
     Indication: MUCORMYCOSIS
     Route: 042
  2. POSACONAZOLE [Suspect]
     Active Substance: POSACONAZOLE
     Indication: MUCORMYCOSIS
     Dosage: UNK UNK, UNKNOWN FREQ.

REACTIONS (1)
  - Drug ineffective [Fatal]
